FAERS Safety Report 26163602 (Version 2)
Quarter: 2025Q4

REPORT INFORMATION
  Report Type: Spontaneous
  Country: JP (occurrence: JP)
  Receive Date: 20251216
  Receipt Date: 20251219
  Transmission Date: 20260118
  Serious: Yes (Other)
  Sender: GILEAD
  Company Number: JP-GILEAD-2025-0741014

PATIENT
  Age: 71 Year
  Sex: Female

DRUGS (1)
  1. YESCARTA [Suspect]
     Active Substance: AXICABTAGENE CILOLEUCEL
     Indication: Diffuse large B-cell lymphoma recurrent
     Dosage: UNK
     Route: 065

REACTIONS (5)
  - Neutrophil count decreased [Unknown]
  - Platelet count decreased [Unknown]
  - Cytopenia [Unknown]
  - Cytokine release syndrome [Unknown]
  - Anaemia [Unknown]
